FAERS Safety Report 12249055 (Version 1)
Quarter: 2016Q2

REPORT INFORMATION
  Report Type: Spontaneous
  Country: US (occurrence: None)
  Receive Date: 20160407
  Receipt Date: 20160407
  Transmission Date: 20160815
  Serious: Yes (Hospitalization)
  Sender: FDA-Public Use
  Company Number: None

PATIENT
  Age: 55 Year
  Sex: Male
  Weight: 93 kg

DRUGS (1)
  1. TEMOZOLOMIDE. [Suspect]
     Active Substance: TEMOZOLOMIDE
     Dosage: DELAY 15 DAYS
     Dates: end: 20160229

REACTIONS (3)
  - Dehydration [None]
  - Urinary incontinence [None]
  - Confusional state [None]

NARRATIVE: CASE EVENT DATE: 20160301
